FAERS Safety Report 9333278 (Version 1)
Quarter: 2013Q2

REPORT INFORMATION
  Report Type: Report from Study
  Country: FR (occurrence: FR)
  Receive Date: 20130606
  Receipt Date: 20130606
  Transmission Date: 20140414
  Serious: Yes (Other)
  Sender: FDA-Public Use
  Company Number: FR-BAYER-2013-067243

PATIENT
  Sex: Female

DRUGS (4)
  1. LOW-DOSE ASPIRIN [Suspect]
     Indication: ANTIPHOSPHOLIPID SYNDROME
  2. HYDROXYCHLOROQUINE [Suspect]
  3. AZATHIOPRINE [Suspect]
  4. HEPARIN [Suspect]

REACTIONS (3)
  - Premature delivery [None]
  - Exposure during pregnancy [None]
  - Off label use [None]
